FAERS Safety Report 7037047-5 (Version None)
Quarter: 2010Q4

REPORT INFORMATION
  Report Type: 
  Country: None (occurrence: None)
  Receive Date: 20101011
  Receipt Date: 20101004
  Transmission Date: 20110411
  Serious: Yes (Other)
  Sender: FDA-Public Use
  Company Number: US-JNJCH-2010022703

PATIENT
  Age: 49 Year
  Sex: Female
  Weight: 74.4 kg

DRUGS (1)
  1. SUDAFED S.A. [Suspect]
     Indication: SINUS HEADACHE
     Dosage: TEXT:ONE TABLET TWICE DAILY
     Route: 048
     Dates: start: 20100930, end: 20101002

REACTIONS (4)
  - BLOOD PRESSURE ABNORMAL [None]
  - DIZZINESS [None]
  - OCULAR HYPERAEMIA [None]
  - VISION BLURRED [None]
